FAERS Safety Report 13633942 (Version 2)
Quarter: 2017Q2

REPORT INFORMATION
  Report Type: Spontaneous
  Country: GB (occurrence: GB)
  Receive Date: 20170609
  Receipt Date: 20170616
  Transmission Date: 20170830
  Serious: Yes (Death, Other)
  Sender: FDA-Public Use
  Company Number: GB-TAKEDA-2017TUS012622

PATIENT
  Age: 39 Year
  Sex: Male
  Weight: 89.9 kg

DRUGS (1)
  1. ENTYVIO [Suspect]
     Active Substance: VEDOLIZUMAB
     Indication: COLITIS ULCERATIVE
     Dosage: UNK
     Route: 065
     Dates: start: 20140827

REACTIONS (4)
  - Cardiac arrest [Fatal]
  - Gastrointestinal stoma complication [Fatal]
  - Intestinal obstruction [Fatal]
  - Electrolyte imbalance [Fatal]
